FAERS Safety Report 12684883 (Version 1)
Quarter: 2016Q3

REPORT INFORMATION
  Report Type: Report from Study
  Country: US (occurrence: US)
  Receive Date: 20160825
  Receipt Date: 20160825
  Transmission Date: 20161109
  Serious: Yes (Other)
  Sender: FDA-Public Use
  Company Number: US-JNJFOC-20160812935

PATIENT
  Sex: Female
  Weight: 51.71 kg

DRUGS (5)
  1. PENTASA [Concomitant]
     Active Substance: MESALAMINE
     Dosage: 500 MG CAPSULES FOR 30 DAYS
     Route: 065
  2. SULFASALAZINE. [Concomitant]
     Active Substance: SULFASALAZINE
     Route: 065
     Dates: start: 20150730
  3. ENTOCORT [Concomitant]
     Active Substance: BUDESONIDE
     Dosage: FOR 30 DAYS
     Route: 065
  4. REMICADE [Suspect]
     Active Substance: INFLIXIMAB
     Indication: CROHN^S DISEASE
     Dosage: 5ML/KG
     Route: 042
     Dates: end: 201511
  5. PREDNISONE. [Concomitant]
     Active Substance: PREDNISONE
     Route: 065
     Dates: start: 20150715

REACTIONS (5)
  - Abdominal pain lower [Unknown]
  - Pyrexia [Unknown]
  - Maternal exposure before pregnancy [Recovered/Resolved]
  - Abscess [Unknown]
  - Gastrointestinal inflammation [Unknown]
